FAERS Safety Report 23693563 (Version 1)
Quarter: 2024Q2

REPORT INFORMATION
  Report Type: Spontaneous
  Country: CN (occurrence: CN)
  Receive Date: 20240401
  Receipt Date: 20240401
  Transmission Date: 20240716
  Serious: Yes (Hospitalization)
  Sender: FDA-Public Use
  Company Number: CN-Merck Healthcare KGaA-2024016073

PATIENT
  Age: 53 Year
  Sex: Male
  Weight: 50 kg

DRUGS (3)
  1. ERBITUX [Suspect]
     Active Substance: CETUXIMAB
     Indication: Tongue neoplasm malignant stage unspecified
     Dosage: 800 MG, UNK
     Route: 041
     Dates: start: 20240225
  2. GEMCITABINE HYDROCHLORIDE [Suspect]
     Active Substance: GEMCITABINE HYDROCHLORIDE
     Indication: Tongue neoplasm malignant stage unspecified
     Dosage: 1.40 G, UNKNOWN
     Route: 041
     Dates: start: 20240226, end: 20240226
  3. CISPLATIN [Suspect]
     Active Substance: CISPLATIN
     Indication: Tongue neoplasm malignant stage unspecified
     Dosage: 30 G, UNKNOWN
     Route: 041
     Dates: start: 20240226

REACTIONS (1)
  - Myelosuppression [Recovering/Resolving]

NARRATIVE: CASE EVENT DATE: 20240306
